FAERS Safety Report 6022746-4 (Version None)
Quarter: 2008Q4

REPORT INFORMATION
  Report Type: 
  Country: None (occurrence: None)
  Receive Date: 20081230
  Receipt Date: 20081223
  Transmission Date: 20090506
  Serious: Yes (Other)
  Sender: FDA-Public Use
  Company Number: US-ASTRAZENECA-2008UW28680

PATIENT
  Age: 66 Year
  Sex: Female
  Weight: 58.1 kg

DRUGS (3)
  1. ARIMIDEX [Suspect]
     Indication: BREAST CANCER
     Route: 048
     Dates: start: 20070401
  2. ACIPHEX [Concomitant]
  3. HYDROCHOLOROTHIZIDE [Concomitant]

REACTIONS (10)
  - ALOPECIA [None]
  - ANXIETY [None]
  - ARTHRALGIA [None]
  - BIOPSY CERVIX ABNORMAL [None]
  - BLOOD PRESSURE INCREASED [None]
  - BONE PAIN [None]
  - COUGH [None]
  - MADAROSIS [None]
  - NAUSEA [None]
  - SMEAR CERVIX ABNORMAL [None]
